FAERS Safety Report 15062012 (Version 4)
Quarter: 2018Q3

REPORT INFORMATION
  Report Type: Spontaneous
  Country: US (occurrence: US)
  Receive Date: 20180625
  Receipt Date: 20180928
  Transmission Date: 20181010
  Serious: Yes (Life-Threatening, Hospitalization, Other)
  Sender: FDA-Public Use
  Company Number: US-CELGENEUS-USA-20180607977

PATIENT
  Age: 82 Year
  Sex: Male
  Weight: 72.6 kg

DRUGS (15)
  1. ALLOPURINOL. [Concomitant]
     Active Substance: ALLOPURINOL
     Indication: PROPHYLAXIS
     Dosage: 300 MILLIGRAM
     Route: 048
     Dates: start: 20180301, end: 20180320
  2. DEXTROSE. [Concomitant]
     Active Substance: DEXTROSE
     Indication: FLUID REPLACEMENT
  3. NORMAL SALINE [Concomitant]
     Active Substance: SODIUM CHLORIDE
     Indication: FLUID REPLACEMENT
  4. MACROGOL [Concomitant]
     Active Substance: POLYETHYLENE GLYCOLS
     Indication: CONSTIPATION
     Dosage: 17 GRAM
     Route: 048
     Dates: start: 20180403
  5. POSACONAZOLE [Concomitant]
     Active Substance: POSACONAZOLE
     Indication: ENZYME INHIBITION
     Dosage: 300 MILLIGRAM
     Route: 048
     Dates: start: 20180301
  6. HYDROXYCARBAMIDE [Concomitant]
     Active Substance: HYDROXYUREA
     Indication: PROPHYLAXIS
     Route: 048
     Dates: start: 20180506
  7. DEXTROSE. [Concomitant]
     Active Substance: DEXTROSE
     Indication: PROPHYLAXIS
     Dosage: 1000 MILLILITER
     Route: 041
     Dates: start: 20180301, end: 20180303
  8. MAGNESIUM CITRATE. [Concomitant]
     Active Substance: MAGNESIUM CITRATE
     Indication: CONSTIPATION
     Dosage: 300 MILLILITER
     Route: 048
     Dates: start: 20180507
  9. AZACITIDINE. [Suspect]
     Active Substance: AZACITIDINE
     Indication: ACUTE MYELOID LEUKAEMIA
     Dosage: 75 MILLIGRAM/SQ. METER
     Route: 058
     Dates: start: 20180307, end: 20180617
  10. OXYGEN. [Concomitant]
     Active Substance: OXYGEN
     Indication: RESPIRATORY FAILURE
     Dosage: 6 LITERS
     Route: 045
     Dates: start: 20180308
  11. VENETOCLAX. [Concomitant]
     Active Substance: VENETOCLAX
     Indication: ACUTE MYELOID LEUKAEMIA
     Route: 065
  12. NORMAL SALINE [Concomitant]
     Active Substance: SODIUM CHLORIDE
     Indication: PROPHYLAXIS
     Dosage: 14 LITERS
     Route: 041
     Dates: start: 20180302, end: 20180315
  13. HYDROMORPHONE [Concomitant]
     Active Substance: HYDROMORPHONE
     Indication: PAIN
     Dosage: 12 MILLIGRAM
     Route: 048
     Dates: start: 20180303
  14. METOPROLOL. [Concomitant]
     Active Substance: METOPROLOL
     Indication: SUPRAVENTRICULAR TACHYCARDIA
     Dosage: 37.5 MILLIGRAM
     Route: 048
     Dates: start: 20180408
  15. POLYETHYLENE GLYCOL [Concomitant]
     Active Substance: POLYETHYLENE GLYCOLS
     Indication: CONSTIPATION
     Dosage: 17 GRAM
     Route: 048
     Dates: start: 20180507

REACTIONS (2)
  - Acute kidney injury [Recovered/Resolved]
  - Hypotension [Recovered/Resolved]

NARRATIVE: CASE EVENT DATE: 20180616
